FAERS Safety Report 18569586 (Version 1)
Quarter: 2020Q4

REPORT INFORMATION
  Report Type: Spontaneous
  Country: US (occurrence: US)
  Receive Date: 20201201
  Receipt Date: 20201201
  Transmission Date: 20210114
  Serious: Yes (Hospitalization)
  Sender: FDA-Public Use
  Company Number: None

PATIENT
  Sex: Female

DRUGS (11)
  1. HYDRALAZINE [Suspect]
     Active Substance: HYDRALAZINE HYDROCHLORIDE
  2. LOSARTAN POT [Suspect]
     Active Substance: LOSARTAN POTASSIUM
  3. ADCIRCA [Suspect]
     Active Substance: TADALAFIL
     Indication: PULMONARY HYPERTENSION
     Route: 048
     Dates: start: 20180126
  4. AMLODIPINE [Suspect]
     Active Substance: AMLODIPINE BESYLATE
  5. POT CHLORIDE ER [Concomitant]
  6. ATORVASTATIN [Suspect]
     Active Substance: ATORVASTATIN
  7. GLIPIZIDE. [Suspect]
     Active Substance: GLIPIZIDE
  8. POT CLMICRO ER [Concomitant]
  9. ALLOPURINOL. [Suspect]
     Active Substance: ALLOPURINOL
  10. BUMETANIDE. [Suspect]
     Active Substance: BUMETANIDE
  11. ELIQUIS [Suspect]
     Active Substance: APIXABAN

REACTIONS (1)
  - Fluid retention [None]
